FAERS Safety Report 8197336-8 (Version None)
Quarter: 2012Q1

REPORT INFORMATION
  Report Type: 
  Country: None (occurrence: None)
  Receive Date: 20120309
  Receipt Date: 20120224
  Transmission Date: 20120608
  Serious: Yes (Life-Threatening, Other)
  Sender: FDA-Public Use
  Company Number: US-FRI-1000028682

PATIENT
  Sex: Female
  Weight: 89.36 kg

DRUGS (1)
  1. VIIBRYD [Suspect]
     Indication: DEPRESSION
     Dosage: 10 MG

REACTIONS (13)
  - MOTOR DYSFUNCTION [None]
  - SPEECH DISORDER [None]
  - HYPOTENSION [None]
  - UNEVALUABLE EVENT [None]
  - SHOCK [None]
  - ALTERED STATE OF CONSCIOUSNESS [None]
  - MOVEMENT DISORDER [None]
  - ASTHENIA [None]
  - NAUSEA [None]
  - FEELING ABNORMAL [None]
  - VOMITING [None]
  - MALAISE [None]
  - PRURITUS GENERALISED [None]
